FAERS Safety Report 9989571 (Version 1)
Quarter: 2014Q1

REPORT INFORMATION
  Report Type: Spontaneous
  Country: US (occurrence: None)
  Receive Date: 20140123
  Receipt Date: 20140123
  Transmission Date: 20141002
  Serious: Yes (Hospitalization)
  Sender: FDA-Public Use
  Company Number: UTC-039027

PATIENT
  Age: 32 Year
  Sex: Male
  Weight: 64.54 kg

DRUGS (2)
  1. REMODULIN [Suspect]
     Indication: COR PULMONALE CHRONIC
     Dosage: 63.36 UG/KG (0.044 UG/KG, 1 IN 1 MIN), SUBCUTANEOUS
     Route: 058
     Dates: start: 20130803
  2. ADCIRCA (TADALAFIL) [Concomitant]

REACTIONS (1)
  - Local swelling [None]
